FAERS Safety Report 9120599 (Version 1)
Quarter: 2013Q1

REPORT INFORMATION
  Report Type: Spontaneous
  Country: JP (occurrence: JP)
  Receive Date: 20130226
  Receipt Date: 20130226
  Transmission Date: 20140127
  Serious: Yes (Hospitalization, Other)
  Sender: FDA-Public Use
  Company Number: JP-009507513-1302JPN010717

PATIENT
  Age: 62 Year
  Sex: Male

DRUGS (4)
  1. GLACTIV [Suspect]
     Indication: TYPE 2 DIABETES MELLITUS
     Dosage: 50 MG, QD
     Route: 048
  2. GLACTIV [Suspect]
     Dosage: 100 MG, QD
     Route: 048
  3. LIMARMONE [Concomitant]
  4. CRESTOR [Concomitant]

REACTIONS (10)
  - Hyperglycaemia [Unknown]
  - Back pain [Recovered/Resolved]
  - Musculoskeletal stiffness [Recovered/Resolved]
  - Pyrexia [Recovered/Resolved]
  - Pain of skin [Not Recovered/Not Resolved]
  - Pancreatitis acute [Unknown]
  - Interstitial lung disease [Unknown]
  - Intestinal obstruction [Unknown]
  - Collagen disorder [Unknown]
  - Flatulence [Not Recovered/Not Resolved]
